FAERS Safety Report 7752340-6 (Version None)
Quarter: 2011Q3

REPORT INFORMATION
  Report Type: 
  Country: None (occurrence: None)
  Receive Date: 20110915
  Receipt Date: 20110901
  Transmission Date: 20111222
  Serious: Yes (Other)
  Sender: FDA-Public Use
  Company Number: JP-ELI_LILLY_AND_COMPANY-JP201108006677

PATIENT
  Age: 79 Year
  Sex: Female

DRUGS (3)
  1. DEPAKENE [Concomitant]
     Dosage: UNK MG, UNK
     Route: 048
     Dates: start: 20110404, end: 20110709
  2. YOKUKAN-SAN [Concomitant]
     Dosage: UNK
     Route: 048
     Dates: start: 20110404
  3. ZYPREXA [Suspect]
     Indication: SCHIZOPHRENIA
     Dosage: 3.5 MG, QD
     Route: 048
     Dates: start: 20110404, end: 20110709

REACTIONS (2)
  - OEDEMA PERIPHERAL [None]
  - THROMBOSIS [None]
